FAERS Safety Report 14070530 (Version 1)
Quarter: 2017Q4

REPORT INFORMATION
  Report Type: Spontaneous
  Country: US (occurrence: US)
  Receive Date: 20171010
  Receipt Date: 20171010
  Transmission Date: 20180321
  Serious: Yes (Death, Other)
  Sender: FDA-Public Use
  Company Number: US-NAPPMUNDI-USA-2017-0141090

PATIENT
  Sex: Female

DRUGS (2)
  1. OXYCODONE HYDROCHLORIDE (SIMILAR TO NDA 22-272) [Suspect]
     Active Substance: OXYCODONE HYDROCHLORIDE
     Indication: PAIN
     Dosage: UNK, TID
     Route: 048
  2. METHADONE [Suspect]
     Active Substance: METHADONE HYDROCHLORIDE
     Indication: PAIN
     Dosage: UNK, TID
     Route: 065

REACTIONS (17)
  - Euphoric mood [Unknown]
  - Dyspnoea [Unknown]
  - Somnolence [Unknown]
  - Restlessness [Unknown]
  - Assisted suicide [Fatal]
  - Fatigue [Unknown]
  - Pain [Unknown]
  - Dysphagia [Unknown]
  - Delirium [Unknown]
  - Asthenia [Unknown]
  - Ageusia [Unknown]
  - Abdominal distension [Unknown]
  - Unevaluable event [Unknown]
  - Suicidal ideation [Unknown]
  - Hypopnoea [Unknown]
  - Respiration abnormal [Unknown]
  - Stupor [Unknown]
